FAERS Safety Report 16763041 (Version 1)
Quarter: 2019Q3

REPORT INFORMATION
  Report Type: Not Available
  Country: None (occurrence: CN)
  Receive Date: 20190902
  Receipt Date: 20190902
  Transmission Date: 20191005
  Serious: Yes (Other)
  Sender: FDA-Public Use
  Company Number: CN-JIANGSU HENGRUI MEDICINE CO., LTD.-2073905

PATIENT
  Age: 43 Year
  Sex: Female
  Weight: 70 kg

DRUGS (2)
  1. DOCETAXEL INJECTION USP, 20 MG/0.5 ML, SINGLE-DOSE VIAL, TWO-VIAL FORM [Suspect]
     Active Substance: DOCETAXEL
     Indication: BREAST CANCER RECURRENT
     Route: 041
     Dates: start: 20190818, end: 20190818
  2. SODIUM CHLORIDE. [Concomitant]
     Active Substance: SODIUM CHLORIDE
     Route: 041
     Dates: start: 20190818, end: 20190818

REACTIONS (3)
  - Palpitations [Recovering/Resolving]
  - Cyanosis [Recovering/Resolving]
  - Chest discomfort [Recovering/Resolving]

NARRATIVE: CASE EVENT DATE: 20190818
